FAERS Safety Report 5098604-9 (Version None)
Quarter: 2006Q3

REPORT INFORMATION
  Report Type: 
  Country: None (occurrence: None)
  Receive Date: 20060906
  Receipt Date: 20060313
  Transmission Date: 20061208
  Serious: No
  Sender: FDA-Public Use
  Company Number: US-GLAXOSMITHKLINE-A0597327A

PATIENT
  Age: 71 Year
  Sex: Female

DRUGS (5)
  1. REQUIP [Suspect]
     Indication: RESTLESS LEGS SYNDROME
     Dosage: .25MG PER DAY
     Route: 048
     Dates: start: 20060201
  2. AMBIEN [Concomitant]
  3. ZOCOR [Concomitant]
  4. SINGULAIR [Concomitant]
  5. NEXIUM [Concomitant]

REACTIONS (1)
  - HOT FLUSH [None]
